FAERS Safety Report 8034516-6 (Version None)
Quarter: 2012Q1

REPORT INFORMATION
  Report Type: 
  Country: None (occurrence: None)
  Receive Date: 20120110
  Receipt Date: 20111230
  Transmission Date: 20120608
  Serious: Yes (Hospitalization, Other)
  Sender: FDA-Public Use
  Company Number: FI-ABBOTT-11P-055-0876812-00

PATIENT
  Sex: Male
  Weight: 81 kg

DRUGS (11)
  1. HUMIRA [Suspect]
     Indication: PSORIASIS
     Route: 058
     Dates: start: 20110128, end: 20110727
  2. ACETAMINOPHEN [Concomitant]
     Indication: PRODUCT USED FOR UNKNOWN INDICATION
  3. CETIRIZINE [Concomitant]
     Indication: PRODUCT USED FOR UNKNOWN INDICATION
  4. INSULIN [Concomitant]
     Indication: PRODUCT USED FOR UNKNOWN INDICATION
  5. NEUROBION FORTE [Concomitant]
     Indication: PRODUCT USED FOR UNKNOWN INDICATION
  6. PROPRANOLOL HCL [Concomitant]
     Indication: PRODUCT USED FOR UNKNOWN INDICATION
  7. LYRICA [Concomitant]
     Indication: PAIN
     Dosage: STARTED IN THE ACUTE STATE
  8. OBSIDAN FE++ [Concomitant]
     Indication: PRODUCT USED FOR UNKNOWN INDICATION
  9. PANTOPRAZOL SODIUM SESQUIHYDRATE [Concomitant]
     Indication: PRODUCT USED FOR UNKNOWN INDICATION
  10. INSULIN ASPART [Concomitant]
     Indication: PRODUCT USED FOR UNKNOWN INDICATION
  11. HYDROCORTISONE [Concomitant]
     Indication: PRODUCT USED FOR UNKNOWN INDICATION

REACTIONS (22)
  - PERIPHERAL SENSORIMOTOR NEUROPATHY [None]
  - NERVE CONDUCTION STUDIES ABNORMAL [None]
  - HYPERAESTHESIA [None]
  - PARAESTHESIA [None]
  - PAIN IN EXTREMITY [None]
  - NEUROPATHY PERIPHERAL [None]
  - AREFLEXIA [None]
  - THERMOHYPOAESTHESIA [None]
  - HYPOAESTHESIA [None]
  - PARAPARESIS [None]
  - BALANCE DISORDER [None]
  - MUSCULAR WEAKNESS [None]
  - MUSCLE ATROPHY [None]
  - NERVE INJURY [None]
  - ARTHRALGIA [None]
  - GAIT DISTURBANCE [None]
  - PARAKERATOSIS [None]
  - DEMYELINATION [None]
  - VIBRATORY SENSE INCREASED [None]
  - ACANTHOSIS [None]
  - PERIVENTRICULAR LEUKOMALACIA [None]
  - PAIN [None]
